FAERS Safety Report 25835889 (Version 2)
Quarter: 2025Q3

REPORT INFORMATION
  Report Type: Spontaneous
  Country: EU (occurrence: EU)
  Receive Date: 20250923
  Receipt Date: 20250926
  Transmission Date: 20251021
  Serious: Yes (Other)
  Sender: BAUSCH AND LOMB
  Company Number: EU-BAUSCH-BH-2025-017703

PATIENT
  Age: 77 Year
  Sex: Female

DRUGS (2)
  1. CLINDAMYCIN [Suspect]
     Active Substance: CLINDAMYCIN
     Indication: Infected bite
     Route: 065
  2. CEFDITOREN [Concomitant]
     Active Substance: CEFDITOREN
     Indication: Infected bite

REACTIONS (1)
  - Acute generalised exanthematous pustulosis [Recovered/Resolved]
